FAERS Safety Report 18503974 (Version 1)
Quarter: 2020Q4

REPORT INFORMATION
  Report Type: Spontaneous
  Country: US (occurrence: US)
  Receive Date: 20201113
  Receipt Date: 20201113
  Transmission Date: 20210114
  Serious: No
  Sender: FDA-Public Use
  Company Number: US-009507513-2011USA004487

PATIENT
  Age: 18 Year
  Sex: Male

DRUGS (4)
  1. IRINOTECAN [Concomitant]
     Active Substance: IRINOTECAN
     Indication: HEPATIC MASS
  2. TEMODAR [Suspect]
     Active Substance: TEMOZOLOMIDE
     Indication: HEPATIC MASS
  3. TEMODAR [Suspect]
     Active Substance: TEMOZOLOMIDE
     Indication: LYMPHADENOPATHY MEDIASTINAL
     Route: 048
  4. IRINOTECAN [Concomitant]
     Active Substance: IRINOTECAN
     Indication: LYMPHADENOPATHY MEDIASTINAL

REACTIONS (1)
  - Product use in unapproved indication [Unknown]
